FAERS Safety Report 19968378 (Version 1)
Quarter: 2021Q4

REPORT INFORMATION
  Report Type: Spontaneous
  Country: US (occurrence: US)
  Receive Date: 20211019
  Receipt Date: 20211019
  Transmission Date: 20220303
  Serious: No
  Sender: FDA-Public Use
  Company Number: None

PATIENT
  Age: 46 Year
  Sex: Female
  Weight: 98.1 kg

DRUGS (3)
  1. SAXENDA [Suspect]
     Active Substance: LIRAGLUTIDE
     Indication: Weight decreased
     Dosage: ?          QUANTITY:1 INJECTION;
     Route: 030
  2. CLIMERA PATCH [Concomitant]
  3. VIT D3 GUMMIES [Concomitant]

REACTIONS (2)
  - Alopecia [None]
  - Drug ineffective [None]

NARRATIVE: CASE EVENT DATE: 20211012
